FAERS Safety Report 18717510 (Version 1)
Quarter: 2021Q1

REPORT INFORMATION
  Report Type: Spontaneous
  Country: FR (occurrence: FR)
  Receive Date: 20210108
  Receipt Date: 20210108
  Transmission Date: 20210419
  Serious: Yes (Life-Threatening, Hospitalization, Other)
  Sender: FDA-Public Use
  Company Number: FR-PFIZER INC-2021004096

PATIENT
  Age: 61 Year
  Sex: Male
  Weight: 82 kg

DRUGS (8)
  1. HEPARIN PANPHARMA [Suspect]
     Active Substance: HEPARIN SODIUM
     Indication: DEEP VEIN THROMBOSIS
     Dosage: 1000 IU EVERY ONE HOUR
     Route: 041
     Dates: start: 20201116, end: 20201126
  2. TAZOCILLINE [Suspect]
     Active Substance: PIPERACILLIN SODIUM\TAZOBACTAM SODIUM
     Indication: SEPSIS
     Dosage: 12 G, 1X/DAY
     Route: 042
     Dates: start: 20201123, end: 20201127
  3. ALBUMINE HUMAINE [Concomitant]
     Active Substance: ALBUMIN HUMAN
     Dosage: UNK
  4. SERESTA [Concomitant]
     Active Substance: OXAZEPAM
     Dosage: UNK
  5. OXYNORM [Concomitant]
     Active Substance: OXYCODONE HYDROCHLORIDE
     Dosage: UNK
  6. PANTOPRAZOLE [Concomitant]
     Active Substance: PANTOPRAZOLE
     Dosage: UNK
  7. INSULIN [Concomitant]
     Active Substance: INSULIN NOS
     Dosage: UNK
  8. PARACETAMOL [Concomitant]
     Active Substance: ACETAMINOPHEN
     Dosage: UNK

REACTIONS (5)
  - Pulmonary embolism [Recovering/Resolving]
  - Heparin-induced thrombocytopenia [Recovering/Resolving]
  - Heparin-induced thrombocytopenia test positive [Not Recovered/Not Resolved]
  - Off label use [Unknown]
  - Thrombosis [Recovering/Resolving]

NARRATIVE: CASE EVENT DATE: 20201123
